FAERS Safety Report 21480272 (Version 3)
Quarter: 2022Q4

REPORT INFORMATION
  Report Type: Report from Study
  Country: MX (occurrence: MX)
  Receive Date: 20221019
  Receipt Date: 20221115
  Transmission Date: 20230112
  Serious: Yes (Other)
  Sender: FDA-Public Use
  Company Number: MX-NOVARTISPH-NVSC2022MX234849

PATIENT
  Age: 58 Year
  Sex: Female
  Weight: 81 kg

DRUGS (2)
  1. FEMARA [Suspect]
     Active Substance: LETROZOLE
     Indication: Breast cancer
     Dosage: 1 DOSAGE FORM, QD, (2.5 MG)
     Route: 048
     Dates: start: 202102
  2. ZOLEDRONIC ACID [Suspect]
     Active Substance: ZOLEDRONIC ACID
     Indication: Osteoporosis
     Dosage: 1 DOSAGE FORM, Q12MO (4 MG, ANNUALLY, AMPOULE) STOOP DATE AUG 2022
     Route: 042
     Dates: start: 2021

REACTIONS (16)
  - Congenital musculoskeletal disorder of spine [Not Recovered/Not Resolved]
  - Spinal cord disorder [Not Recovered/Not Resolved]
  - Intervertebral disc protrusion [Not Recovered/Not Resolved]
  - Blood triglycerides increased [Not Recovered/Not Resolved]
  - Pelvic misalignment [Not Recovered/Not Resolved]
  - Mood altered [Not Recovered/Not Resolved]
  - Burning sensation [Unknown]
  - Inflammation [Unknown]
  - Eructation [Unknown]
  - Flatulence [Unknown]
  - Blood cholesterol increased [Not Recovered/Not Resolved]
  - Weight decreased [Unknown]
  - Dizziness [Not Recovered/Not Resolved]
  - Headache [Not Recovered/Not Resolved]
  - Insomnia [Unknown]
  - Abdominal pain upper [Not Recovered/Not Resolved]

NARRATIVE: CASE EVENT DATE: 20210201
